FAERS Safety Report 9781717 (Version 1)
Quarter: 2013Q4

REPORT INFORMATION
  Report Type: Spontaneous
  Country: BG (occurrence: BG)
  Receive Date: 20131224
  Receipt Date: 20131224
  Transmission Date: 20140711
  Serious: Yes (Other)
  Sender: FDA-Public Use
  Company Number: CHPA2013BG018784

PATIENT
  Age: 40 Year
  Sex: Male

DRUGS (4)
  1. OTRIVIN MENTHOL [Suspect]
     Indication: RHINITIS
     Dosage: 1 DF, TID
     Route: 045
     Dates: start: 20131218, end: 20131218
  2. NEBILET [Concomitant]
     Dosage: 0.5 DF, BID
     Dates: start: 201312
  3. CO-RENITEC [Concomitant]
     Dosage: 0.5 DF, QD
     Dates: start: 201312
  4. RIVOTRIL [Concomitant]
     Dosage: 0.5 MG, QD
     Dates: start: 201312

REACTIONS (2)
  - Rash pruritic [Recovered/Resolved]
  - Rash erythematous [Recovered/Resolved]
